FAERS Safety Report 18148251 (Version 1)
Quarter: 2020Q3

REPORT INFORMATION
  Report Type: Spontaneous
  Country: CA (occurrence: CA)
  Receive Date: 20200814
  Receipt Date: 20200814
  Transmission Date: 20201103
  Serious: Yes (Life-Threatening)
  Sender: FDA-Public Use
  Company Number: CA-TEVA-2020-CA-1813821

PATIENT
  Age: 79 Year
  Sex: Female
  Weight: 63.56 kg

DRUGS (1)
  1. DIARRHEA RELIEF (LOPERAMIDE) [Suspect]
     Active Substance: LOPERAMIDE
     Indication: DIARRHOEA
     Dosage: ONCE
     Route: 048

REACTIONS (4)
  - Discomfort [Recovered/Resolved]
  - Pain [Recovered/Resolved]
  - Abnormal faeces [Recovered/Resolved]
  - Urinary retention [Recovered/Resolved]
